FAERS Safety Report 19051372 (Version 1)
Quarter: 2021Q1

REPORT INFORMATION
  Report Type: Spontaneous
  Country: IT (occurrence: IT)
  Receive Date: 20210324
  Receipt Date: 20210324
  Transmission Date: 20210420
  Serious: Yes (Hospitalization)
  Sender: FDA-Public Use
  Company Number: IT-TEVA-2021-IT-1892835

PATIENT
  Sex: Male

DRUGS (2)
  1. CDDP [Suspect]
     Active Substance: CISPLATIN
     Indication: LUNG ADENOCARCINOMA
     Dosage: DISCONTINUED AFTER 4 CYCLES
     Route: 065
  2. PEMETREXED. [Suspect]
     Active Substance: PEMETREXED
     Indication: LUNG ADENOCARCINOMA
     Dosage: DISCONTINUED AFTER 4 CYCLES
     Route: 065

REACTIONS (2)
  - Respiratory failure [Unknown]
  - Idiopathic pulmonary fibrosis [Unknown]
